FAERS Safety Report 7797617-3 (Version None)
Quarter: 2011Q3

REPORT INFORMATION
  Report Type: 
  Country: None (occurrence: None)
  Receive Date: 20110926
  Receipt Date: 20110920
  Transmission Date: 20111222
  Serious: Yes (Other)
  Sender: FDA-Public Use
  Company Number: 2011029836

PATIENT
  Age: 82 Year
  Sex: Male
  Weight: 81.6475 kg

DRUGS (19)
  1. SINGULAIR [Concomitant]
  2. SYMBICORT [Concomitant]
  3. NEXIUM [Concomitant]
  4. ACETAMINOPHEN [Concomitant]
  5. VERAPAMIL [Concomitant]
  6. AVAPRO [Concomitant]
  7. TUMS (CALCIUM CARBONATE) [Concomitant]
  8. HIZENTRA [Suspect]
     Indication: IMMUNODEFICIENCY COMMON VARIABLE
     Dosage: (10 G 1X/WEEK, (50 ML) MULTIPLE SITES OVER ONE TO TWO HOURS SUBCUTANEOUS), (SUBCUTANEOUS)
     Route: 058
     Dates: start: 20100615
  9. HYDROCORTONE [Concomitant]
  10. AXID AR (NIZATIDINE) [Concomitant]
  11. CALCIUM WITH D (CALCIUM WITH VITAMIN D) [Concomitant]
  12. NITROQUICK (GLYCERYL TRINITRATE) [Concomitant]
  13. IMDUR [Concomitant]
  14. PREDNISONE TAB [Concomitant]
  15. XOPENEX [Concomitant]
  16. QVAR [Concomitant]
  17. THEOPHYLLINE [Concomitant]
  18. HIZENTRA [Suspect]
  19. ASPIRIN [Concomitant]

REACTIONS (1)
  - ASTHMA [None]
